FAERS Safety Report 6336904-2 (Version None)
Quarter: 2009Q3

REPORT INFORMATION
  Report Type: 
  Country: None (occurrence: None)
  Receive Date: 20090901
  Receipt Date: 20090824
  Transmission Date: 20100115
  Serious: Yes (Hospitalization)
  Sender: FDA-Public Use
  Company Number: PHEH2009US09811

PATIENT
  Sex: Male
  Weight: 74.376 kg

DRUGS (2)
  1. EXJADE [Suspect]
     Indication: MYELODYSPLASTIC SYNDROME
     Dosage: 1500 MG DAILY
     Dates: start: 20090323, end: 20090601
  2. EXJADE [Suspect]
     Indication: HAEMOCHROMATOSIS

REACTIONS (1)
  - PNEUMONIA [None]
